FAERS Safety Report 15604410 (Version 1)
Quarter: 2018Q4

REPORT INFORMATION
  Report Type: Spontaneous
  Country: US (occurrence: US)
  Receive Date: 20181110
  Receipt Date: 20181110
  Transmission Date: 20190205
  Serious: No
  Sender: FDA-Public Use
  Company Number: US-JNJFOC-20181034698

PATIENT
  Age: 74 Year
  Sex: Female
  Weight: 56.7 kg

DRUGS (1)
  1. XARELTO [Suspect]
     Active Substance: RIVAROXABAN
     Indication: VARICOSE VEIN
     Route: 048
     Dates: start: 20181003

REACTIONS (5)
  - Blood cholesterol increased [Unknown]
  - Off label use [Unknown]
  - Product use in unapproved indication [Unknown]
  - Low density lipoprotein increased [Unknown]
  - High density lipoprotein decreased [Unknown]

NARRATIVE: CASE EVENT DATE: 20181003
